FAERS Safety Report 9025027 (Version 1)
Quarter: 2013Q1

REPORT INFORMATION
  Report Type: Spontaneous
  Country: FR (occurrence: FR)
  Receive Date: 20130121
  Receipt Date: 20130121
  Transmission Date: 20140127
  Serious: Yes (Other)
  Sender: FDA-Public Use
  Company Number: FR-JNJFOC-20130105805

PATIENT
  Age: 7 Year
  Sex: Female
  Weight: 21 kg

DRUGS (4)
  1. REMICADE [Suspect]
     Indication: COLITIS
     Dosage: 7TH INFUSION
     Route: 042
     Dates: start: 20121117
  2. REMICADE [Suspect]
     Indication: COLITIS
     Dosage: 1ST INFUSION
     Route: 042
     Dates: start: 20120411
  3. REMICADE [Suspect]
     Indication: COLITIS
     Dosage: 6TH INFUSION
     Route: 042
     Dates: start: 20120926
  4. DELURSAN [Concomitant]
     Route: 065

REACTIONS (5)
  - Myalgia [Recovered/Resolved]
  - Drug specific antibody present [Unknown]
  - Arthralgia [Recovered/Resolved]
  - Headache [Recovered/Resolved]
  - Abdominal pain [Recovered/Resolved]
